FAERS Safety Report 18109087 (Version 2)
Quarter: 2024Q3

REPORT INFORMATION
  Report Type: Spontaneous
  Country: CA (occurrence: None)
  Receive Date: 20200804
  Receipt Date: 20240807
  Transmission Date: 20241017
  Serious: Yes (Hospitalization)
  Sender: ASTRAZENECA
  Company Number: 2020SE94906

PATIENT
  Age: 68 Year
  Sex: Female
  Weight: 90 kg

DRUGS (9)
  1. IMFINZI [Suspect]
     Active Substance: DURVALUMAB
     Indication: Lung squamous cell carcinoma stage III
     Dosage: 900.0 MILLIGRAMS TWO TIMES IN TWO WEEKS
     Route: 042
     Dates: start: 20191125, end: 20191210
  2. IMFINZI [Suspect]
     Active Substance: DURVALUMAB
     Indication: Lung carcinoma cell type unspecified stage III
     Dosage: 900.0 MILLIGRAMS TWO TIMES IN TWO WEEKS
     Route: 042
     Dates: start: 20191125, end: 20191210
  3. ROSUVASTATIN [Suspect]
     Active Substance: ROSUVASTATIN\ROSUVASTATIN CALCIUM
     Route: 048
     Dates: start: 201512
  4. BISOPROLOL [Concomitant]
     Active Substance: BISOPROLOL\BISOPROLOL FUMARATE
     Dates: start: 201806
  5. CELECOXIB [Concomitant]
     Active Substance: CELECOXIB
     Dates: start: 201908
  6. EZETIMIBE [Concomitant]
     Active Substance: EZETIMIBE
     Dates: start: 201807
  7. LYRICA [Concomitant]
     Active Substance: PREGABALIN
     Dates: start: 201607
  8. PANTOPRAZOLE [Concomitant]
     Active Substance: PANTOPRAZOLE
     Route: 042
  9. VITAMIN D [Concomitant]
     Active Substance: VITAMIN D NOS
     Dates: start: 201902

REACTIONS (7)
  - Diplopia [Unknown]
  - Hemiparesis [Unknown]
  - Mobility decreased [Unknown]
  - Sensory loss [Unknown]
  - Visual impairment [Unknown]
  - Muscular weakness [Unknown]
  - Myasthenia gravis [Recovering/Resolving]

NARRATIVE: CASE EVENT DATE: 20191221
